FAERS Safety Report 9369802 (Version 1)
Quarter: 2013Q2

REPORT INFORMATION
  Report Type: Spontaneous
  Country: ES (occurrence: ES)
  Receive Date: 20130626
  Receipt Date: 20130626
  Transmission Date: 20140414
  Serious: Yes (Hospitalization)
  Sender: FDA-Public Use
  Company Number: ES-PFIZER INC-2013185817

PATIENT
  Age: 53 Year
  Sex: Female

DRUGS (3)
  1. CARBOPLATIN [Suspect]
     Indication: OVARIAN NEOPLASM
     Dosage: UNK
     Route: 042
     Dates: start: 20121114
  2. GEMCITABINE HYDROCHLORIDE [Suspect]
     Indication: OVARIAN NEOPLASM
     Dosage: UNK
     Route: 042
     Dates: start: 20121114
  3. AVASTIN [Suspect]
     Indication: OVARIAN NEOPLASM
     Dosage: UNK
     Route: 042
     Dates: start: 20121114

REACTIONS (5)
  - Vomiting [Recovered/Resolved]
  - Nausea [Recovered/Resolved]
  - Tachycardia [Recovered/Resolved]
  - Feeling hot [Recovered/Resolved]
  - Flushing [Recovered/Resolved]
